FAERS Safety Report 13082851 (Version 2)
Quarter: 2017Q1

REPORT INFORMATION
  Report Type: Report from Study
  Country: None (occurrence: BR)
  Receive Date: 20170103
  Receipt Date: 20170106
  Transmission Date: 20170428
  Serious: Yes (Other)
  Sender: FDA-Public Use
  Company Number: BR-ABBVIE-16K-020-1825187-00

PATIENT
  Age: 67 Year
  Sex: Female
  Weight: 73 kg

DRUGS (10)
  1. PRELONE [Concomitant]
     Active Substance: PREDNISOLONE
     Indication: ARTHRITIS
     Route: 048
  2. HUMIRA [Suspect]
     Active Substance: ADALIMUMAB
     Indication: RHEUMATOID ARTHRITIS
     Route: 058
     Dates: start: 20110101
  3. ENALAPRIL MALEATE. [Concomitant]
     Active Substance: ENALAPRIL MALEATE
     Indication: BLOOD PRESSURE ABNORMAL
     Route: 048
  4. RIVOTRIL [Concomitant]
     Active Substance: CLONAZEPAM
     Indication: SLEEP DISORDER THERAPY
  5. HUMIRA [Suspect]
     Active Substance: ADALIMUMAB
     Route: 058
  6. AMITRIPTYLINE [Concomitant]
     Active Substance: AMITRIPTYLINE
     Indication: DEPRESSION
     Route: 048
  7. NIMESULIDE [Concomitant]
     Active Substance: NIMESULIDE
     Indication: ARTHRITIS
     Route: 048
  8. HYDROCHLOROTHIAZIDE. [Concomitant]
     Active Substance: HYDROCHLOROTHIAZIDE
     Indication: BLOOD PRESSURE ABNORMAL
     Route: 048
  9. RIVOTRIL [Concomitant]
     Active Substance: CLONAZEPAM
     Indication: DEPRESSION
     Dosage: 10 DROPS WITH WATER
     Route: 048
  10. TYLEX [Concomitant]
     Active Substance: ACETAMINOPHEN\CODEINE PHOSPHATE
     Indication: PAIN
     Dosage: AS NEEDED
     Route: 048

REACTIONS (8)
  - Gait disturbance [Recovered/Resolved]
  - Neurogenic bladder [Unknown]
  - Spinal column stenosis [Recovered/Resolved]
  - Post procedural complication [Recovered/Resolved]
  - Ileus paralytic [Unknown]
  - Malaise [Unknown]
  - Gait disturbance [Recovered/Resolved]
  - Computerised tomogram abnormal [Unknown]

NARRATIVE: CASE EVENT DATE: 201510
